FAERS Safety Report 7284452-8 (Version None)
Quarter: 2011Q1

REPORT INFORMATION
  Report Type: 
  Country: None (occurrence: None)
  Receive Date: 20110209
  Receipt Date: 20110209
  Transmission Date: 20110831
  Serious: Yes (Other)
  Sender: FDA-Public Use
  Company Number: US-PFIZER INC-2010137026

PATIENT
  Sex: Female
  Weight: 149 kg

DRUGS (11)
  1. CHANTIX [Suspect]
     Indication: SMOKING CESSATION THERAPY
     Dosage: 0.5 MG, 1X/DAY
     Dates: start: 20100101, end: 20100101
  2. CHANTIX [Suspect]
     Dosage: 1 MG, 2X/DAY
     Route: 048
     Dates: start: 20100101, end: 20100301
  3. METFORMIN [Concomitant]
     Dosage: 500 MG, 2X/DAY
  4. DARIFENACIN [Concomitant]
     Dosage: 75 MG, DAILY
  5. NEXIUM [Concomitant]
     Dosage: 40 MG, DAILY
  6. SEROQUEL [Concomitant]
     Dosage: 400 MG, UNK
  7. KLONOPIN [Concomitant]
     Dosage: 1 MG, DAILY
  8. MELOXICAM [Concomitant]
     Dosage: 15 MG, DAILY
  9. ALBUTEROL [Concomitant]
     Indication: ASTHMA
     Dosage: UNK, AS NEEDED
  10. EFFEXOR XR [Concomitant]
     Dosage: 300 MG, DAILY
  11. LISINOPRIL AND HYDROCHLOROTHIAZIDE [Concomitant]
     Dosage: 20MG/12.5 MG , UNK

REACTIONS (2)
  - TONGUE DISORDER [None]
  - GLOSSODYNIA [None]
